FAERS Safety Report 5772254-0 (Version None)
Quarter: 2008Q2

REPORT INFORMATION
  Report Type: 
  Country: None (occurrence: None)
  Receive Date: 20080613
  Receipt Date: 20080603
  Transmission Date: 20081010
  Serious: Yes (Other)
  Sender: FDA-Public Use
  Company Number: PHHY2008BR10081

PATIENT
  Sex: Female
  Weight: 75 kg

DRUGS (5)
  1. FORASEQ [Suspect]
     Indication: PNEUMONIA
     Dosage: 12/400MCG, ONCE A DAY
     Dates: start: 20070601
  2. FORASEQ [Suspect]
     Dosage: 12/400MCG TWICE A DAY
     Dates: start: 20080201
  3. CRESTOR [Concomitant]
     Indication: BLOOD CHOLESTEROL INCREASED
     Dosage: 1 TABLET/LUNCH
     Route: 048
     Dates: start: 20061201
  4. METFORMIN HCL [Concomitant]
     Indication: DIABETES MELLITUS
     Dosage: 2 DF, BID
     Route: 048
     Dates: start: 20061201
  5. TRAVATAN [Concomitant]
     Indication: INTRAOCULAR PRESSURE TEST
     Dosage: ONCE MORNINGAND ONCE NIGHT
     Dates: start: 20060601

REACTIONS (4)
  - INFLUENZA [None]
  - NERVOUSNESS [None]
  - PNEUMONIA [None]
  - WRONG TECHNIQUE IN DRUG USAGE PROCESS [None]
